FAERS Safety Report 14453386 (Version 3)
Quarter: 2018Q1

REPORT INFORMATION
  Report Type: Spontaneous
  Country: US (occurrence: US)
  Receive Date: 20180129
  Receipt Date: 20180316
  Transmission Date: 20180509
  Serious: No
  Sender: FDA-Public Use
  Company Number: US-009507513-1801USA006301

PATIENT
  Age: 39 Year
  Sex: Male

DRUGS (4)
  1. CLOZAPINE. [Concomitant]
     Active Substance: CLOZAPINE
  2. CORLANOR [Concomitant]
     Active Substance: IVABRADINE HYDROCHLORIDE
     Indication: POSTURAL ORTHOSTATIC TACHYCARDIA SYNDROME
  3. REMERON [Suspect]
     Active Substance: MIRTAZAPINE
     Indication: INSOMNIA
  4. REMERON [Suspect]
     Active Substance: MIRTAZAPINE
     Indication: DEPRESSION
     Dosage: ONE 45MG TABLET EVERY NIGHT
     Route: 048
     Dates: start: 20180110, end: 201802

REACTIONS (16)
  - Arthritis [Unknown]
  - Insomnia [Recovered/Resolved]
  - Wrong technique in product usage process [Unknown]
  - Product use in unapproved indication [Unknown]
  - Product quality issue [Unknown]
  - Pain in extremity [Unknown]
  - Myalgia [Recovered/Resolved]
  - Chest pain [Recovered/Resolved]
  - Neurological symptom [Unknown]
  - Mood altered [Recovered/Resolved]
  - Restlessness [Recovered/Resolved]
  - Hangover [Unknown]
  - Hypoaesthesia [Unknown]
  - Muscle twitching [Recovered/Resolved]
  - Muscle twitching [Unknown]
  - Somnolence [Unknown]

NARRATIVE: CASE EVENT DATE: 201801
